FAERS Safety Report 7678040-9 (Version None)
Quarter: 2011Q3

REPORT INFORMATION
  Report Type: 
  Country: None (occurrence: None)
  Receive Date: 20110811
  Receipt Date: 20110809
  Transmission Date: 20111222
  Serious: Yes (Hospitalization)
  Sender: FDA-Public Use
  Company Number: DE-GLAXOSMITHKLINE-D0071927A

PATIENT
  Sex: Male
  Weight: 52 kg

DRUGS (4)
  1. OPIPRAMOL [Suspect]
     Route: 048
     Dates: start: 20110704
  2. ASPIRIN [Suspect]
     Route: 048
     Dates: start: 20110704
  3. SUMATRIPTAN SUCCINATE [Suspect]
     Dosage: 20MG PER DAY
     Route: 045
     Dates: start: 20110704
  4. CITALOPRAM HYDROBROMIDE [Suspect]
     Route: 048
     Dates: start: 20110704

REACTIONS (10)
  - CIRCULATORY COLLAPSE [None]
  - SOMNOLENCE [None]
  - VOMITING [None]
  - GAIT DISTURBANCE [None]
  - DRUG ABUSE [None]
  - MOVEMENT DISORDER [None]
  - CONTUSION [None]
  - RETROGRADE AMNESIA [None]
  - DYSKINESIA [None]
  - DIZZINESS [None]
